FAERS Safety Report 4754927-1 (Version None)
Quarter: 2005Q3

REPORT INFORMATION
  Report Type: 
  Country: None (occurrence: None)
  Receive Date: 20050829
  Receipt Date: 20050819
  Transmission Date: 20060218
  Serious: Yes (Death)
  Sender: FDA-Public Use
  Company Number: FR-ROCHE-414761

PATIENT
  Age: 72 Year
  Sex: Female

DRUGS (13)
  1. NAPROSYN [Suspect]
     Route: 048
     Dates: start: 20050517, end: 20050523
  2. NEXEN [Suspect]
     Route: 048
     Dates: start: 20050510, end: 20050517
  3. DIAMICRON [Concomitant]
  4. DOLIPRANE [Concomitant]
  5. GLUCOPHAGE [Concomitant]
  6. LEVOTHYROXINE SODIUM [Concomitant]
  7. OROCAL [Concomitant]
  8. OMEPRAZOLE [Concomitant]
  9. STILNOX [Concomitant]
  10. DITROPAN [Concomitant]
  11. ZESTORETIC [Concomitant]
  12. CORTANCYL [Concomitant]
  13. DI-ANTALVIC [Concomitant]

REACTIONS (1)
  - LEUKOCYTOCLASTIC VASCULITIS [None]
